FAERS Safety Report 4669011-5 (Version None)
Quarter: 2005Q2

REPORT INFORMATION
  Report Type: 
  Country: None (occurrence: None)
  Receive Date: 20050523
  Receipt Date: 20040531
  Transmission Date: 20051028
  Serious: Yes (Other)
  Sender: FDA-Public Use
  Company Number: PHBS2004IT07356

PATIENT
  Age: 69 Year
  Sex: Female

DRUGS (2)
  1. ZOMETA [Suspect]
     Indication: MULTIPLE MYELOMA
     Dosage: EVERY 28 DAYS
     Route: 042
     Dates: start: 20021001, end: 20040201
  2. INTERFERON ALFA-2A [Concomitant]
     Route: 065

REACTIONS (4)
  - MANDIBULECTOMY [None]
  - OSTEOMYELITIS [None]
  - OSTEONECROSIS [None]
  - WOUND DEBRIDEMENT [None]
